FAERS Safety Report 12494831 (Version 4)
Quarter: 2016Q4

REPORT INFORMATION
  Report Type: Report from Study
  Country: US (occurrence: US)
  Receive Date: 20160624
  Receipt Date: 20161011
  Transmission Date: 20170207
  Serious: Yes (Other)
  Sender: FDA-Public Use
  Company Number: US-AMGEN-USASL2016080907

PATIENT
  Age: 51 Year
  Sex: Female

DRUGS (2)
  1. ENBREL [Suspect]
     Active Substance: ETANERCEPT
     Indication: RHEUMATOID ARTHRITIS
     Dosage: 50 MG, QWK
     Route: 065
     Dates: start: 2008, end: 200807
  2. ENBREL [Suspect]
     Active Substance: ETANERCEPT
     Dosage: 50 MG, Q2WK
     Route: 058
     Dates: start: 200807

REACTIONS (18)
  - Vitamin D decreased [Unknown]
  - Dry eye [Unknown]
  - Localised infection [Unknown]
  - Drug dose omission [Unknown]
  - Felty^s syndrome [Unknown]
  - Off label use [Unknown]
  - Eye disorder [Recovered/Resolved]
  - Photophobia [Recovered/Resolved]
  - Condition aggravated [Unknown]
  - Muscle spasms [Unknown]
  - Nasopharyngitis [Unknown]
  - Atypical pneumonia [Unknown]
  - Burning sensation [Unknown]
  - Muscle twitching [Unknown]
  - Chondropathy [Unknown]
  - Pain [Unknown]
  - Rheumatoid arthritis [Unknown]
  - Malaise [Unknown]

NARRATIVE: CASE EVENT DATE: 2008
